FAERS Safety Report 8688745 (Version 3)
Quarter: 2013Q2

REPORT INFORMATION
  Report Type: Report from Study
  Country: BR (occurrence: BR)
  Receive Date: 20120727
  Receipt Date: 20130509
  Transmission Date: 20140414
  Serious: Yes (Hospitalization, Other)
  Sender: FDA-Public Use
  Company Number: BR-ROCHE-1091865

PATIENT
  Sex: Female
  Weight: 71 kg

DRUGS (7)
  1. MABTHERA [Suspect]
     Indication: ARTHRITIS
     Route: 042
     Dates: start: 20100901
  2. MABTHERA [Suspect]
     Indication: SYSTEMIC LUPUS ERYTHEMATOSUS
  3. DIAMICRON [Concomitant]
     Route: 065
  4. LANTUS [Concomitant]
  5. GLICLAZIDE [Concomitant]
  6. DEFLAZACORT [Concomitant]
  7. HUMALOG [Concomitant]

REACTIONS (4)
  - Cataract [Recovered/Resolved]
  - Diabetes mellitus inadequate control [Recovered/Resolved]
  - Tendon rupture [Unknown]
  - Fall [Unknown]
